FAERS Safety Report 4830028-9 (Version None)
Quarter: 2005Q4

REPORT INFORMATION
  Report Type: 
  Country: None (occurrence: None)
  Receive Date: 20051115
  Receipt Date: 20051115
  Transmission Date: 20060501
  Serious: Yes (Life-Threatening, Hospitalization)
  Sender: FDA-Public Use
  Company Number: None

PATIENT
  Age: 58 Year
  Sex: Male
  Weight: 95.709 kg

DRUGS (6)
  1. FLUDARABINE [Suspect]
     Indication: NON-HODGKIN'S LYMPHOMA
     Dosage: 55MG IV X 5 DAYS
     Route: 042
     Dates: start: 20050808, end: 20050812
  2. RITUXIMAB 10MG/ML 10ML VIAL [Suspect]
     Dosage: 800MG IV ON DAYS 1+4
     Route: 042
     Dates: start: 20050808
  3. PROCHLORPERAZINE [Concomitant]
  4. ONDANSETRON [Concomitant]
  5. SENNA [Concomitant]
  6. MULTIVITAMINS/MINERALS [Concomitant]

REACTIONS (7)
  - CHILLS [None]
  - FEBRILE NEUTROPENIA [None]
  - FEELING ABNORMAL [None]
  - HYPERHIDROSIS [None]
  - NON-HODGKIN'S LYMPHOMA RECURRENT [None]
  - PANCYTOPENIA [None]
  - THROMBOCYTOPENIA [None]
